APPROVED DRUG PRODUCT: PREDNISOLONE SODIUM PHOSPHATE
Active Ingredient: PREDNISOLONE SODIUM PHOSPHATE
Strength: EQ 15MG BASE/5ML
Dosage Form/Route: SOLUTION;ORAL
Application: A076895 | Product #001
Applicant: PHARMOBEDIENT CONSULTING LLC
Approved: Oct 4, 2004 | RLD: No | RS: No | Type: DISCN